FAERS Safety Report 8381540-X (Version None)
Quarter: 2012Q2

REPORT INFORMATION
  Report Type: 
  Country: None (occurrence: None)
  Receive Date: 20120523
  Receipt Date: 20120521
  Transmission Date: 20120825
  Serious: No
  Sender: FDA-Public Use
  Company Number: US-PFIZER INC-2012123019

PATIENT
  Sex: Male

DRUGS (2)
  1. GABAPENTIN [Suspect]
     Indication: PERIPHERAL NERVE INJURY
     Dosage: 600 MG, 3X/DAY
     Route: 048
     Dates: start: 20120501
  2. GABAPENTIN [Suspect]
     Indication: DIABETIC NEUROPATHY
     Dosage: 300 MG, 3X/DAY
     Route: 048
     Dates: start: 20120501, end: 20120501

REACTIONS (1)
  - DRUG INEFFECTIVE [None]
